FAERS Safety Report 16287421 (Version 7)
Quarter: 2020Q3

REPORT INFORMATION
  Report Type: Report from Study
  Country: US (occurrence: US)
  Receive Date: 20190508
  Receipt Date: 20200824
  Transmission Date: 20201102
  Serious: Yes (Life-Threatening, Hospitalization)
  Sender: FDA-Public Use
  Company Number: US-PFIZER INC-2019161219

PATIENT
  Age: 70 Year
  Sex: Male
  Weight: 92.08 kg

DRUGS (22)
  1. NOVOLOG [Concomitant]
     Active Substance: INSULIN ASPART
     Dosage: 25 DF, UNK
     Route: 058
     Dates: start: 201211
  2. ATORVASTATIN CALCIUM. [Concomitant]
     Active Substance: ATORVASTATIN CALCIUM
     Dosage: 40 MG, UNK
     Dates: start: 20180905
  3. CHLORTHALIDONE. [Concomitant]
     Active Substance: CHLORTHALIDONE
     Dosage: 50 MG, UNK
     Dates: start: 20181214, end: 20190424
  4. CEFDINIR. [Concomitant]
     Active Substance: CEFDINIR
     Dosage: 300 MG, UNK
     Dates: start: 20190313
  5. AXITINIB [Suspect]
     Active Substance: AXITINIB
     Indication: METASTATIC RENAL CELL CARCINOMA
     Dosage: 5 MG, 2X/DAY (STARTING DOSE AT 5 MG BID, FLUCTUATING DOSES AND FREQUENCY)
     Route: 048
     Dates: start: 20170920, end: 20190403
  6. PEMBROLIZUMAB. [Suspect]
     Active Substance: PEMBROLIZUMAB
     Dosage: 200 MG, EVERY 3 WEEKS (CYCLE 27)
     Route: 042
     Dates: start: 20190502
  7. MESALAMINE. [Concomitant]
     Active Substance: MESALAMINE
     Dosage: 1.2 G, UNK
     Dates: start: 20190116, end: 20190515
  8. PEMBROLIZUMAB. [Suspect]
     Active Substance: PEMBROLIZUMAB
     Dosage: 200 MG, EVERY 3 WEEKS (CYCLE 26)
     Route: 042
     Dates: start: 20190321, end: 20190321
  9. FLUDROCORTISON [Concomitant]
     Active Substance: FLUDROCORTISONE
     Dosage: 0.5 MEQ, UNK
     Dates: start: 201511, end: 20190424
  10. OMEPRAZOLE. [Concomitant]
     Active Substance: OMEPRAZOLE
     Dosage: 20 MG, UNK
     Dates: start: 20190308
  11. PEMBROLIZUMAB. [Suspect]
     Active Substance: PEMBROLIZUMAB
     Indication: METASTATIC RENAL CELL CARCINOMA
     Dosage: 200 MG, EVERY 3 WEEKS (INTRAVENOUSLY (IV) (VOLUME OF INFUSION: 100 ML))
     Route: 042
     Dates: start: 20170920, end: 20190228
  12. HYDROCORT [HYDROCORTISONE ACETATE] [Concomitant]
     Dosage: 5 MG, UNK
     Dates: start: 201511
  13. CARVEDILOL. [Concomitant]
     Active Substance: CARVEDILOL
     Indication: HYPERTENSION
     Dosage: 25 MG, UNK
     Dates: start: 20180216, end: 20190424
  14. AVASTIN [Concomitant]
     Active Substance: BEVACIZUMAB
     Dosage: 1.25 MG, UNK
     Dates: start: 20160809
  15. TRESIBA [Concomitant]
     Active Substance: INSULIN DEGLUDEC
     Dosage: 5 DF, UNK
     Route: 058
     Dates: start: 20190306
  16. TAMSULOSIN HYDROCHLORIDE. [Concomitant]
     Active Substance: TAMSULOSIN HYDROCHLORIDE
     Indication: SUPPORTIVE CARE
     Dosage: 0.4 MG, UNK
     Dates: start: 20190308, end: 20190425
  17. AXITINIB [Suspect]
     Active Substance: AXITINIB
     Dosage: 2 MG, DAILY
     Route: 048
     Dates: start: 20190404, end: 20190404
  18. ZOLEDRONIC ACID [Concomitant]
     Active Substance: ZOLEDRONIC ACID
     Dosage: 4 MG, UNK
     Dates: start: 20170906
  19. AMLODIPINE [Concomitant]
     Active Substance: AMLODIPINE BESYLATE
     Indication: HYPERTENSION
     Dosage: 10 MG, UNK
     Dates: start: 20180323, end: 20190424
  20. LEVOTHYROXINE SODIUM. [Concomitant]
     Active Substance: LEVOTHYROXINE SODIUM
     Dosage: 150 MEQ, UNK
     Dates: start: 20190114
  21. DEXTROSE. [Concomitant]
     Active Substance: DEXTROSE
     Dosage: 25 ML, UNK
     Dates: start: 20190404, end: 20190409
  22. IRBESARTAN. [Concomitant]
     Active Substance: IRBESARTAN
     Indication: HYPERTENSION
     Dosage: 300 MG, UNK
     Dates: start: 20180727, end: 20190424

REACTIONS (2)
  - Pyelonephritis [Recovered/Resolved]
  - Neutropenia [Recovered/Resolved]

NARRATIVE: CASE EVENT DATE: 20190405
